FAERS Safety Report 11138060 (Version 1)
Quarter: 2015Q2

REPORT INFORMATION
  Report Type: Spontaneous
  Country: US (occurrence: US)
  Receive Date: 20150526
  Receipt Date: 20150526
  Transmission Date: 20150821
  Serious: No
  Sender: FDA-Public Use
  Company Number: US-GLAXOSMITHKLINE-US2015GSK071860

PATIENT
  Sex: Female

DRUGS (1)
  1. TANZEUM [Suspect]
     Active Substance: ALBIGLUTIDE
     Indication: TYPE 2 DIABETES MELLITUS
     Dosage: 30 MG, WE
     Dates: start: 2015

REACTIONS (5)
  - Injection site reaction [Recovered/Resolved]
  - Incorrect dose administered [Unknown]
  - Medication error [Unknown]
  - Device use error [Unknown]
  - Injection site swelling [Recovered/Resolved]
